FAERS Safety Report 5050551-4 (Version None)
Quarter: 2006Q3

REPORT INFORMATION
  Report Type: 
  Country: None (occurrence: None)
  Receive Date: 20060707
  Receipt Date: 20060623
  Transmission Date: 20061208
  Serious: Yes (Other)
  Sender: FDA-Public Use
  Company Number: 226994

PATIENT
  Age: 60 Year
  Sex: Female

DRUGS (7)
  1. AVASTIN [Suspect]
     Indication: COLON CANCER
     Dosage: 10 MG/KG, Q2W, INTRAVENOUS
     Route: 042
     Dates: start: 20060619
  2. SUSPECTED DRUG(GENERIC COMPONENT(S) NOT KNOWN) [Suspect]
     Indication: COLON CANCER
     Dates: start: 20060619
  3. LEUCOVORIN CALCIUM [Suspect]
     Indication: COLON CANCER
     Dates: start: 20060619
  4. FLUOROURACIL [Suspect]
     Indication: COLON CANCER
     Dates: start: 20060619
  5. OXALIPLATIN (OXALIPLATIN) [Suspect]
     Indication: COLON CANCER
     Dates: start: 20060619
  6. ACETAMINOPHEN [Concomitant]
  7. ANTIBIOTICS NOS (ANTIBIOTICS NOS) [Concomitant]

REACTIONS (1)
  - PYREXIA [None]
